FAERS Safety Report 5711118-5 (Version None)
Quarter: 2008Q2

REPORT INFORMATION
  Report Type: 
  Country: None (occurrence: None)
  Receive Date: 20080415
  Receipt Date: 20080408
  Transmission Date: 20081010
  Serious: Yes (Hospitalization)
  Sender: FDA-Public Use
  Company Number: SP01839

PATIENT
  Age: 63 Year
  Sex: Male

DRUGS (2)
  1. VISICOL [Suspect]
     Indication: COMPUTERISED TOMOGRAM
     Dosage: 50 GM,ORAL
     Route: 048
     Dates: start: 20080218, end: 20080218
  2. DILTIAZEM [Concomitant]

REACTIONS (6)
  - ASTHENIA [None]
  - BLOOD PRESSURE DIASTOLIC INCREASED [None]
  - HYPOCALCAEMIA [None]
  - HYPOKALAEMIA [None]
  - HYPOTENSION [None]
  - NAUSEA [None]
